FAERS Safety Report 15459706 (Version 1)
Quarter: 2018Q4

REPORT INFORMATION
  Report Type: Spontaneous
  Country: US (occurrence: US)
  Receive Date: 20181001
  Receipt Date: 20181001
  Transmission Date: 20190204
  Serious: Yes (Other)
  Sender: FDA-Public Use
  Company Number: None

PATIENT
  Age: 48 Year
  Sex: Female

DRUGS (1)
  1. CIPRO [Suspect]
     Active Substance: CIPROFLOXACIN HYDROCHLORIDE
     Indication: CYSTITIS
     Dates: start: 20180716, end: 20180719

REACTIONS (4)
  - Joint swelling [None]
  - Peripheral swelling [None]
  - Impaired work ability [None]
  - Gait disturbance [None]

NARRATIVE: CASE EVENT DATE: 20180719
